FAERS Safety Report 8437255-2 (Version None)
Quarter: 2012Q2

REPORT INFORMATION
  Report Type: 
  Country: None (occurrence: None)
  Receive Date: 20120614
  Receipt Date: 20120301
  Transmission Date: 20120825
  Serious: No
  Sender: FDA-Public Use
  Company Number: US-AMGEN-USASP2012005147

PATIENT
  Age: 72 Year
  Sex: Female
  Weight: 61 kg

DRUGS (2)
  1. XGEVA [Suspect]
     Indication: LUNG CANCER METASTATIC
     Dosage: 120 MG, Q4WK
     Route: 058
     Dates: start: 20120119
  2. TARCEVA [Concomitant]
     Dosage: 100 MG, QD
     Dates: start: 20120112

REACTIONS (3)
  - SENSITIVITY OF TEETH [None]
  - TOOTHACHE [None]
  - PAIN IN JAW [None]
